FAERS Safety Report 17963770 (Version 1)
Quarter: 2020Q2

REPORT INFORMATION
  Report Type: Spontaneous
  Country: FR (occurrence: FR)
  Receive Date: 20200630
  Receipt Date: 20200630
  Transmission Date: 20200714
  Serious: Yes (Death, Congenital Anomaly)
  Sender: FDA-Public Use
  Company Number: FR-PFIZER INC-2020249445

PATIENT

DRUGS (1)
  1. DOSTINEX [Suspect]
     Active Substance: CABERGOLINE
     Indication: PITUITARY TUMOUR BENIGN
     Dosage: 1 MG, WEEKLY
     Route: 064
     Dates: start: 20191208, end: 20191223

REACTIONS (2)
  - Maternal exposure during pregnancy [Fatal]
  - Congenital anomaly [Fatal]

NARRATIVE: CASE EVENT DATE: 20200225
